FAERS Safety Report 10563545 (Version 1)
Quarter: 2014Q4

REPORT INFORMATION
  Report Type: Spontaneous
  Country: DE (occurrence: DE)
  Receive Date: 20141104
  Receipt Date: 20141104
  Transmission Date: 20150529
  Serious: Yes (Hospitalization, Congenital Anomaly)
  Sender: FDA-Public Use
  Company Number: GXKR2014DE004067

PATIENT

DRUGS (2)
  1. L-THYROXINE//LEVOTHYROXINE [Concomitant]
     Indication: HYPOTHYROIDISM
     Dosage: 75 [?G/D ]
     Route: 064
     Dates: start: 20120731, end: 20130506
  2. MIRTAZAPINE. [Suspect]
     Active Substance: MIRTAZAPINE
     Indication: DEPRESSION
     Dosage: 30 [MG/D ]
     Route: 064
     Dates: start: 20120731, end: 20130506

REACTIONS (3)
  - Congenital skin dimples [Unknown]
  - Rash generalised [Recovered/Resolved]
  - Haemangioma [Unknown]
